FAERS Safety Report 13778071 (Version 1)
Quarter: 2017Q3

REPORT INFORMATION
  Report Type: Spontaneous
  Country: DE (occurrence: DE)
  Receive Date: 20170721
  Receipt Date: 20170721
  Transmission Date: 20171127
  Serious: Yes (Hospitalization, Other)
  Sender: FDA-Public Use
  Company Number: DE-ELI_LILLY_AND_COMPANY-DE201703011481

PATIENT
  Sex: Male

DRUGS (4)
  1. OLANZAPINE. [Concomitant]
     Active Substance: OLANZAPINE
     Indication: PRODUCT USED FOR UNKNOWN INDICATION
     Route: 048
  2. PANTOPRAZOLE [Concomitant]
     Active Substance: PANTOPRAZOLE
     Route: 048
  3. ZYPADHERA [Suspect]
     Active Substance: OLANZAPINE PAMOATE
     Indication: PSYCHOTIC DISORDER
     Dosage: 405 MG, SINGLE
     Route: 030
     Dates: start: 20170320
  4. VALPROIC ACID. [Concomitant]
     Active Substance: VALPROIC ACID
     Indication: PRODUCT USED FOR UNKNOWN INDICATION
     Route: 048

REACTIONS (32)
  - Disorientation [Unknown]
  - Extrapyramidal disorder [Unknown]
  - Hypertension [Unknown]
  - Lipase decreased [Unknown]
  - Restlessness [Unknown]
  - Malaise [Unknown]
  - Agitation [Unknown]
  - Cognitive disorder [Unknown]
  - White blood cell count increased [Unknown]
  - Fatigue [Unknown]
  - Coma [Unknown]
  - Confusional state [Unknown]
  - Blood creatinine decreased [Unknown]
  - Red blood cell count decreased [Not Recovered/Not Resolved]
  - Mean cell volume increased [Recovered/Resolved]
  - Blood albumin decreased [Unknown]
  - Delirium [Unknown]
  - Anxiety [Unknown]
  - Ataxia [Unknown]
  - Asthenia [Unknown]
  - C-reactive protein increased [Unknown]
  - Post-injection delirium sedation syndrome [Unknown]
  - Aggression [Unknown]
  - Dizziness [Unknown]
  - Seizure [Unknown]
  - Haemoglobin decreased [Recovered/Resolved]
  - Haematocrit decreased [Recovered/Resolved]
  - Blood calcium decreased [Not Recovered/Not Resolved]
  - Blood sodium decreased [Unknown]
  - Dysarthria [Unknown]
  - Mean cell haemoglobin increased [Not Recovered/Not Resolved]
  - Blood lactate dehydrogenase increased [Unknown]

NARRATIVE: CASE EVENT DATE: 20170320
